FAERS Safety Report 4716799-0 (Version None)
Quarter: 2005Q3

REPORT INFORMATION
  Report Type: 
  Country: None (occurrence: None)
  Receive Date: 20050719
  Receipt Date: 20050404
  Transmission Date: 20060218
  Serious: Yes (Hospitalization)
  Sender: FDA-Public Use
  Company Number: DE-AMGEN-UK124566

PATIENT
  Sex: Male

DRUGS (14)
  1. CINACALCET [Suspect]
     Indication: HYPERPARATHYROIDISM SECONDARY
     Route: 048
     Dates: start: 20041214
  2. ROXITHROMYCIN [Concomitant]
  3. ASPIRIN [Concomitant]
  4. BISOPROLOL [Concomitant]
  5. ENALAPRIL [Concomitant]
  6. DIGITOXIN TAB [Concomitant]
  7. OMEPRAZOLE [Concomitant]
  8. VITAMINS [Concomitant]
  9. VITARENAL [Concomitant]
  10. VIGANTOL [Concomitant]
  11. CALCITRIOL [Concomitant]
  12. CALCIUM ACETATE [Concomitant]
  13. CALCIUM CARBONATE [Concomitant]
  14. PHOSPHONORM [Concomitant]

REACTIONS (3)
  - COUGH [None]
  - DYSPNOEA [None]
  - LEFT VENTRICULAR FAILURE [None]
